FAERS Safety Report 10120908 (Version 2)
Quarter: 2014Q2

REPORT INFORMATION
  Report Type: Spontaneous
  Country: DE (occurrence: DE)
  Receive Date: 20140425
  Receipt Date: 20140517
  Transmission Date: 20141212
  Serious: Yes (Hospitalization)
  Sender: FDA-Public Use
  Company Number: DE-JNJFOC-20140415470

PATIENT
  Age: 55 Year
  Sex: Female
  Weight: 52 kg

DRUGS (8)
  1. IBUPROFEN [Suspect]
     Indication: PAIN
     Route: 065
  2. LYRICA [Suspect]
     Indication: HERPES ZOSTER
     Route: 048
  3. LYRICA [Suspect]
     Indication: HERPES ZOSTER
     Route: 048
     Dates: start: 20140120, end: 20140209
  4. LYRICA [Suspect]
     Indication: HERPES ZOSTER
     Route: 048
     Dates: start: 20140210, end: 20140227
  5. LYRICA [Suspect]
     Indication: PAIN
     Route: 048
     Dates: start: 20140210, end: 20140227
  6. LYRICA [Suspect]
     Indication: PAIN
     Route: 048
     Dates: start: 20140120, end: 20140209
  7. LYRICA [Suspect]
     Indication: PAIN
     Route: 048
  8. ZOSTEX [Concomitant]
     Indication: HERPES ZOSTER
     Route: 065
     Dates: start: 20131223, end: 20131229

REACTIONS (10)
  - Blood alkaline phosphatase increased [Recovered/Resolved]
  - Blood bilirubin increased [Recovered/Resolved]
  - Gamma-glutamyltransferase increased [Recovered/Resolved]
  - Aspartate aminotransferase increased [Recovered/Resolved]
  - Alanine aminotransferase increased [Recovered/Resolved]
  - Hepatitis [Recovered/Resolved]
  - Jaundice [Recovered/Resolved]
  - Weight decreased [Recovered/Resolved]
  - Asthenia [Recovered/Resolved]
  - Chromaturia [Recovered/Resolved]
